FAERS Safety Report 4368148-8 (Version None)
Quarter: 2004Q2

REPORT INFORMATION
  Report Type: 
  Country: None (occurrence: None)
  Receive Date: 20040602
  Receipt Date: 20040319
  Transmission Date: 20050107
  Serious: Yes (Hospitalization)
  Sender: FDA-Public Use
  Company Number: PHBS2004JP03936

PATIENT
  Age: 56 Year
  Sex: Male

DRUGS (1)
  1. LAMISIL [Suspect]
     Indication: NAIL TINEA
     Dosage: 125 MG/D
     Route: 048
     Dates: start: 20030804, end: 20040210

REACTIONS (3)
  - BLOOD CREATININE ABNORMAL [None]
  - NEPHRITIS INTERSTITIAL [None]
  - PROSTATITIS [None]
